FAERS Safety Report 5229228-8 (Version None)
Quarter: 2007Q1

REPORT INFORMATION
  Report Type: 
  Country: None (occurrence: None)
  Receive Date: 20061201
  Receipt Date: 20060829
  Transmission Date: 20070707
  Serious: No
  Sender: FDA-Public Use
  Company Number: US200608000936

PATIENT
  Age: 46 Year
  Sex: Male
  Weight: 93 kg

DRUGS (34)
  1. CYMBALTA [Suspect]
     Indication: DEPRESSION
     Dosage: 60 MG
     Dates: start: 20060501, end: 20060628
  2. PLAVIX [Concomitant]
  3. ASPIRIN [Concomitant]
  4. METOPROLOL TARTRATE [Concomitant]
  5. NIASPAN [Concomitant]
  6. PRAVACHOL [Concomitant]
  7. ZETIA [Concomitant]
  8. TOPAMAX         /AUS/(TOPIRAMATE) [Concomitant]
  9. POTASSIUM CHLORIDE [Concomitant]
  10. LORAZEPAM [Concomitant]
  11. VALIUM             /NET/(DIAZEPAM) [Concomitant]
  12. HYDROCODONE (HYDROCODONE) [Concomitant]
  13. APAP (PARACETAMOL) [Concomitant]
  14. HYDROCODONE (HYDROCODONE) [Concomitant]
  15. IBUPROFEN [Concomitant]
  16. COMPAZINE [Concomitant]
  17. PROCHLORPERAZINE MALEATE [Concomitant]
  18. PREGABALIN (PREGABALIN) [Concomitant]
  19. WELLBUTRIN [Concomitant]
  20. NORVIR [Concomitant]
  21. ATAZANAVIR (ATAZANAVIR) [Concomitant]
  22. ZIAGEN [Concomitant]
  23. TENOFOVIR DISOPROXIL FUMARATE (TENOFOVIR DISOPROXIL FUMARATE) [Concomitant]
  24. EMTRICITABINE (EMTRICITABINE) [Concomitant]
  25. ACYCLOVIR [Concomitant]
  26. TRAZODONE HCL [Concomitant]
  27. COMBIVENT              /GFR/(IPRATROPIUM BROMIDE, SALBUTAMOL SULFATE) [Concomitant]
  28. QVAR [Concomitant]
  29. ALLEGRA [Concomitant]
  30. SINGULAIR [Concomitant]
  31. ADVAIR DISKUS (FLUTICASONE PROPIONATE, SALMETEROL XINAFOATE) [Concomitant]
  32. ASTELIN [Concomitant]
  33. NITROGLYCERIN ^PHARMACIA + UPJOHN^ (GLYCERYL TRINITRATE) [Concomitant]
  34. MUTIPLE VITAMINS (ASCORBIC ACID, ERGOCALICIFEROL, FOLIC ACID, RETINOL, [Concomitant]

REACTIONS (6)
  - ABNORMAL BEHAVIOUR [None]
  - ANGER [None]
  - EMOTIONAL DISORDER [None]
  - IMPULSIVE BEHAVIOUR [None]
  - LUNG DISORDER [None]
  - MIGRAINE [None]
